FAERS Safety Report 18179547 (Version 2)
Quarter: 2020Q4

REPORT INFORMATION
  Report Type: Other
  Country: CA (occurrence: CA)
  Receive Date: 20200821
  Receipt Date: 20201002
  Transmission Date: 20210113
  Serious: Yes (Other)
  Sender: FDA-Public Use
  Company Number: CA-APOTEX-2020AP016509

PATIENT
  Age: 75 Year
  Sex: Male

DRUGS (3)
  1. MOMETASONE [Suspect]
     Active Substance: MOMETASONE
     Indication: PRODUCT USED FOR UNKNOWN INDICATION
     Dosage: UNK
     Route: 065
  2. MEPOLIZUMAB [Suspect]
     Active Substance: MEPOLIZUMAB
     Indication: ASTHMA
     Dosage: 100 MILLIGRAM
     Route: 042
  3. VENTOLIN [Suspect]
     Active Substance: ALBUTEROL SULFATE
     Indication: PRODUCT USED FOR UNKNOWN INDICATION
     Dosage: UNK
     Route: 065

REACTIONS (7)
  - Eosinophilic bronchitis [Unknown]
  - Ill-defined disorder [Unknown]
  - Cough [Unknown]
  - Bronchial obstruction [Unknown]
  - Asthma [Unknown]
  - Gait disturbance [Unknown]
  - Therapeutic product effect incomplete [Unknown]
